FAERS Safety Report 4270460-8 (Version None)
Quarter: 2004Q1

REPORT INFORMATION
  Report Type: 
  Country: None (occurrence: None)
  Receive Date: 20040114
  Receipt Date: 20040105
  Transmission Date: 20041129
  Serious: Yes (Hospitalization)
  Sender: FDA-Public Use
  Company Number: FR-GLAXOSMITHKLINE-B0318787A

PATIENT
  Age: 42 Year
  Sex: Male

DRUGS (5)
  1. ONDANSETRON HCL [Suspect]
     Indication: PROPHYLAXIS OF NAUSEA AND VOMITING
     Dosage: 8MG PER DAY
     Route: 042
     Dates: start: 20030825, end: 20030829
  2. HOLOXAN [Suspect]
     Dosage: 800MGM2 PER DAY
     Route: 042
     Dates: start: 20030825, end: 20030829
  3. UROMITEXAN [Suspect]
     Dosage: 1000MGM2 PER DAY
     Route: 042
     Dates: start: 20030825, end: 20030829
  4. NAVELBINE [Concomitant]
     Dosage: 20MGM2 PER DAY
     Route: 042
     Dates: start: 20030825, end: 20030825
  5. NOVANTRONE [Concomitant]
     Route: 042
     Dates: start: 20030825, end: 20030825

REACTIONS (2)
  - RENAL FAILURE [None]
  - STATUS EPILEPTICUS [None]
